FAERS Safety Report 5814468-7 (Version None)
Quarter: 2008Q3

REPORT INFORMATION
  Report Type: 
  Country: None (occurrence: None)
  Receive Date: 20080715
  Receipt Date: 20080619
  Transmission Date: 20090109
  Serious: Yes (Hospitalization)
  Sender: FDA-Public Use
  Company Number: 2008S1010586

PATIENT
  Age: 16 Year
  Sex: Female

DRUGS (14)
  1. PHENYTOIN [Suspect]
     Indication: CONVULSION
     Dosage: 20 MG/KG; INTRAVENOUS BOLUS; 140 MG; 180 MG;
     Route: 040
  2. PHENYTOIN [Suspect]
     Indication: STATUS EPILEPTICUS
     Dosage: 20 MG/KG; INTRAVENOUS BOLUS; 140 MG; 180 MG;
     Route: 040
  3. PHENOBARBITAL TAB [Concomitant]
  4. CARBAMAZEPINE [Concomitant]
  5. ZONISAMIDE [Concomitant]
  6. PHENOBARBITAL TAB [Concomitant]
  7. FERROUS FUMARATE [Suspect]
     Indication: IRON DEFICIENCY ANAEMIA
     Dosage: (305 MG, 1 D), ORAL
     Route: 048
     Dates: start: 20080508, end: 20080603
  8. TELMISARTAN (TELMISARTAN) [Concomitant]
  9. BENFOTIAMINE, B6, B12 COMBINED DRUG [Concomitant]
  10. ZOLPIDEM TARTRATE [Concomitant]
  11. MOSAPRIDE CITRATE (MOSAPRIDE CITRATE) [Concomitant]
  12. MAGNESIUM OXIDE (MAGNESIUM OXIDE) [Concomitant]
  13. INSULIN DETEMIR (INSULIN DETEMIR) [Concomitant]
  14. INSULIN LISPRO (INSULIN LISPRO) [Concomitant]

REACTIONS (7)
  - ABDOMINAL DISTENSION [None]
  - BLOOD PARATHYROID HORMONE INCREASED [None]
  - COMPLEX PARTIAL SEIZURES [None]
  - GASTROINTESTINAL HYPOMOTILITY [None]
  - GASTROINTESTINAL SOUNDS ABNORMAL [None]
  - PORTAL VENOUS GAS [None]
  - PROTEIN TOTAL DECREASED [None]
